FAERS Safety Report 8409373 (Version 4)
Quarter: 2014Q1

REPORT INFORMATION
  Report Type: Spontaneous
  Country: US (occurrence: US)
  Receive Date: 20120216
  Receipt Date: 20140225
  Transmission Date: 20141002
  Serious: Yes (Hospitalization, Congenital Anomaly, Other)
  Sender: FDA-Public Use
  Company Number: US-PFIZER INC-2012038215

PATIENT
  Age: 3 Month
  Sex: Female
  Weight: 3.42 kg

DRUGS (15)
  1. ZOLOFT [Suspect]
     Indication: DEPRESSION
     Dosage: UNK
     Route: 064
     Dates: start: 200005, end: 2006
  2. ZOLOFT [Suspect]
     Indication: ANXIETY
     Dosage: 100 MG, UNK
     Route: 064
     Dates: start: 20070928, end: 20110308
  3. ZOLOFT [Suspect]
     Indication: ADJUSTMENT DISORDER
  4. ZOLOFT [Suspect]
     Indication: GENERALISED ANXIETY DISORDER
  5. ASCORBIC ACID [Concomitant]
     Dosage: 500 MG, 1X/DAY
     Route: 064
  6. IRON [Concomitant]
     Dosage: UNK
     Route: 064
  7. DOCUSATE SODIUM [Concomitant]
     Dosage: UNK
     Route: 064
  8. SYNTHROID [Concomitant]
     Indication: HYPOTHYROIDISM
     Dosage: 50 UG, UNK
     Route: 064
  9. TRIAMCINOLONE ACETONIDE [Concomitant]
     Indication: DERMATITIS ALLERGIC
     Dosage: UNK, TWICE A DAY
     Route: 064
     Dates: start: 20080124
  10. FOLIC ACID [Concomitant]
     Dosage: 1 MG, 1X/DAY
     Route: 064
  11. PRENATAL VITAMINS [Concomitant]
     Dosage: UNK, ONCE DAILY
     Route: 064
     Dates: start: 20071227
  12. VITAMIN C [Concomitant]
     Indication: VITAMIN SUPPLEMENTATION
     Dosage: 500 MG, UNK
     Route: 064
     Dates: start: 20080606
  13. ZOFRAN ODT [Concomitant]
     Indication: NAUSEA
     Dosage: 4 MG, UNK
     Route: 064
     Dates: start: 20080121
  14. ZANTAC [Concomitant]
     Indication: GASTROOESOPHAGEAL REFLUX DISEASE
     Dosage: 150 MG, UNK
     Route: 064
     Dates: start: 20080418
  15. FERRO-SEQUELS [Concomitant]
     Indication: MINERAL SUPPLEMENTATION
     Dosage: UNK
     Route: 064
     Dates: start: 20080606

REACTIONS (14)
  - Maternal exposure timing unspecified [Unknown]
  - Pulmonary artery atresia [Unknown]
  - Cleft palate [Unknown]
  - Developmental hip dysplasia [Unknown]
  - Hypoplastic right heart syndrome [Unknown]
  - Patent ductus arteriosus [Unknown]
  - Otitis media chronic [Unknown]
  - Atrial septal defect [Unknown]
  - Tricuspid valve incompetence [Recovered/Resolved]
  - Pulmonary valve stenosis [Unknown]
  - Pyelocaliectasis [Unknown]
  - Right ventricular hypertrophy [Unknown]
  - Speech disorder [Unknown]
  - Cow^s milk intolerance [Unknown]
